FAERS Safety Report 5505946-9 (Version None)
Quarter: 2007Q4

REPORT INFORMATION
  Report Type: 
  Country: None (occurrence: None)
  Receive Date: 20071105
  Receipt Date: 20071024
  Transmission Date: 20080405
  Serious: Yes (Hospitalization)
  Sender: FDA-Public Use
  Company Number: PHBS2007DE17750

PATIENT
  Age: 12 Day
  Sex: Male
  Weight: 3.5 kg

DRUGS (1)
  1. PRAVIDEL [Suspect]
     Dosage: 2.5MG , ONCE/SINGLE
     Dates: start: 20071014

REACTIONS (3)
  - ACCIDENTAL DRUG INTAKE BY CHILD [None]
  - ACCIDENTAL EXPOSURE [None]
  - SOMNOLENCE [None]
